FAERS Safety Report 5514904-X (Version None)
Quarter: 2007Q4

REPORT INFORMATION
  Report Type: 
  Country: None (occurrence: None)
  Receive Date: 20071113
  Receipt Date: 20060928
  Transmission Date: 20080405
  Serious: No
  Sender: FDA-Public Use
  Company Number: A0621796A

PATIENT
  Age: 50 Year
  Sex: Female

DRUGS (12)
  1. COREG [Suspect]
     Dosage: 6.25MG TWICE PER DAY
     Route: 048
     Dates: start: 20060924
  2. SYNTHROID [Concomitant]
  3. MAGNESIUM OXIDE [Concomitant]
  4. METFORMIN HCL [Concomitant]
  5. MULTI-VITAMIN [Concomitant]
  6. AVANDIA [Concomitant]
  7. VICODIN [Concomitant]
  8. LASIX [Concomitant]
  9. NEURONTIN [Concomitant]
  10. LISINOPRIL [Concomitant]
  11. IMDUR [Concomitant]
  12. NOVOLOG [Concomitant]

REACTIONS (3)
  - APHONIA [None]
  - BACK PAIN [None]
  - DYSPNOEA [None]
